FAERS Safety Report 14222862 (Version 2)
Quarter: 2018Q2

REPORT INFORMATION
  Report Type: Spontaneous
  Country: US (occurrence: US)
  Receive Date: 20171124
  Receipt Date: 20180426
  Transmission Date: 20180711
  Serious: Yes (Hospitalization)
  Sender: FDA-Public Use
  Company Number: US-JNJFOC-20171118814

PATIENT
  Age: 27 Year
  Sex: Female
  Weight: 48.99 kg

DRUGS (1)
  1. XARELTO [Suspect]
     Active Substance: RIVAROXABAN
     Indication: DEEP VEIN THROMBOSIS
     Route: 048
     Dates: start: 20160207, end: 20160328

REACTIONS (5)
  - Pulmonary alveolar haemorrhage [Recovering/Resolving]
  - Epistaxis [Recovered/Resolved]
  - Haematochezia [Recovering/Resolving]
  - Stoma site haemorrhage [Not Recovered/Not Resolved]
  - Haematemesis [Recovered/Resolved]

NARRATIVE: CASE EVENT DATE: 201603
